FAERS Safety Report 8975766 (Version 2)
Quarter: 2013Q1

REPORT INFORMATION
  Report Type: Spontaneous
  Country: US (occurrence: US)
  Receive Date: 20121219
  Receipt Date: 20130104
  Transmission Date: 20140127
  Serious: Yes (Other)
  Sender: FDA-Public Use
  Company Number: US-AMGEN-USASP2012069520

PATIENT
  Age: 60 Year
  Sex: Female
  Weight: 50.34 kg

DRUGS (8)
  1. PROLIA [Suspect]
     Indication: OSTEOPOROSIS
     Dosage: 60 MG, Q6MO
     Route: 058
     Dates: start: 201205
  2. PROLIA [Suspect]
  3. CRESTOR [Concomitant]
     Indication: BLOOD CHOLESTEROL INCREASED
     Dosage: 5 MG, QD
     Route: 048
  4. PANTOPRAZOLE [Concomitant]
     Indication: GASTROOESOPHAGEAL REFLUX DISEASE
     Dosage: 40 MG, QD
     Route: 048
  5. LYRICA [Concomitant]
     Dates: start: 20121211
  6. FEMHRT [Concomitant]
  7. ASPIRIN [Concomitant]
     Dosage: 81 MG, UNK
  8. VACCINES [Concomitant]
     Dosage: UNK
     Dates: start: 20121011

REACTIONS (10)
  - Mammogram abnormal [Unknown]
  - Electrophoresis protein abnormal [Unknown]
  - Paraesthesia [Unknown]
  - Pain [Unknown]
  - Burning sensation [Unknown]
  - Neuralgia [Unknown]
  - Hyperaesthesia [Unknown]
  - Blood urine present [Unknown]
  - Hot flush [Unknown]
  - Feeling hot [Unknown]
